FAERS Safety Report 8832533 (Version 2)
Quarter: 2012Q4

REPORT INFORMATION
  Report Type: 
  Country: US (occurrence: US)
  Receive Date: 20121010
  Receipt Date: 20121022
  Transmission Date: 20130627
  Serious: No
  Sender: FDA-Public Use
  Company Number: US-009507513-1210USA002799

PATIENT
  Sex: Male

DRUGS (2)
  1. REBETOL [Suspect]
     Indication: HEPATITIS C
     Dosage: UNK
     Dates: start: 20000101, end: 20001101
  2. PEG-INTRON [Suspect]
     Indication: HEPATITIS C
     Dosage: UNK
     Route: 058
     Dates: start: 20000101, end: 20001101

REACTIONS (4)
  - Drug ineffective [Unknown]
  - Pyrexia [Unknown]
  - Dizziness [Unknown]
  - Red blood cell count decreased [Unknown]
